FAERS Safety Report 5240078-9 (Version None)
Quarter: 2007Q1

REPORT INFORMATION
  Report Type: 
  Country: None (occurrence: None)
  Receive Date: 20070216
  Receipt Date: 20070206
  Transmission Date: 20070707
  Serious: Yes (Hospitalization)
  Sender: FDA-Public Use
  Company Number: FR-PFIZER INC-2007010175

PATIENT
  Age: 66 Year
  Sex: Male

DRUGS (3)
  1. TAHOR [Suspect]
     Route: 048
  2. PREVISCAN [Interacting]
     Indication: PROPHYLAXIS
     Route: 048
  3. ALLOPURINOL SODIUM [Interacting]
     Route: 048

REACTIONS (2)
  - MELAENA [None]
  - PROTHROMBIN TIME PROLONGED [None]
